FAERS Safety Report 20516956 (Version 2)
Quarter: 2022Q1

REPORT INFORMATION
  Report Type: Spontaneous
  Country: GB (occurrence: GB)
  Receive Date: 20220225
  Receipt Date: 20220310
  Transmission Date: 20220423
  Serious: Yes (Life-Threatening, Hospitalization, Other)
  Sender: FDA-Public Use
  Company Number: GB-NOVOPROD-894611

PATIENT
  Age: 11 Year
  Sex: Female

DRUGS (3)
  1. NORDITROPIN [Suspect]
     Active Substance: SOMATROPIN
     Indication: Turner^s syndrome
     Dosage: UNK
     Route: 065
  2. ESTROGENS [Concomitant]
     Active Substance: ESTROGENS
     Indication: Hormone replacement therapy
     Dosage: UNK
     Route: 065
  3. LEVOTHYROXINE [Concomitant]
     Active Substance: LEVOTHYROXINE
     Indication: Product used for unknown indication
     Dosage: UNK
     Route: 065

REACTIONS (7)
  - Gastrointestinal stromal tumour [Recovered/Resolved]
  - Gastric haemorrhage [Recovered/Resolved]
  - Shock [Unknown]
  - Acute kidney injury [Unknown]
  - Blood lactic acid increased [Unknown]
  - Metabolic acidosis [Unknown]
  - Incorrect dose administered [Unknown]
